FAERS Safety Report 6299017-4 (Version None)
Quarter: 2009Q3

REPORT INFORMATION
  Report Type: 
  Country: None (occurrence: None)
  Receive Date: 20090804
  Receipt Date: 20090721
  Transmission Date: 20100115
  Serious: Yes (Hospitalization)
  Sender: FDA-Public Use
  Company Number: 220039K09GBR

PATIENT
  Age: 66 Year
  Sex: Female

DRUGS (1)
  1. SAIZEN [Suspect]
     Dosage: 8 MG, SUBCUTANEOUS
     Route: 058
     Dates: start: 19970621, end: 20090701

REACTIONS (2)
  - DRUG DOSE OMISSION [None]
  - SPINAL OPERATION [None]
